FAERS Safety Report 10886119 (Version 2)
Quarter: 2015Q2

REPORT INFORMATION
  Report Type: Spontaneous
  Country: US (occurrence: None)
  Receive Date: 20150302
  Receipt Date: 20150413
  Transmission Date: 20150821
  Serious: Yes (Hospitalization, Other)
  Sender: FDA-Public Use
  Company Number: CA-ALSI-201500037

PATIENT
  Age: 73 Year
  Sex: Male

DRUGS (1)
  1. OXYGEN. [Suspect]
     Active Substance: OXYGEN
     Indication: CARDIAC FAILURE CONGESTIVE
     Dosage: 3 I ONCE A MINUTE RESPIRATORY?
     Route: 055
     Dates: start: 20141101

REACTIONS (2)
  - Thermal burn [None]
  - Wrong technique in drug usage process [None]
